FAERS Safety Report 11811313 (Version 1)
Quarter: 2015Q4

REPORT INFORMATION
  Report Type: Spontaneous
  Country: US (occurrence: US)
  Receive Date: 20151208
  Receipt Date: 20151208
  Transmission Date: 20160305
  Serious: Yes (Other)
  Sender: FDA-Public Use
  Company Number: PHHY2015US158895

PATIENT
  Age: 71 Year
  Sex: Female

DRUGS (4)
  1. DAPSONE. [Suspect]
     Active Substance: DAPSONE
     Indication: MUCOUS MEMBRANE DISORDER
     Route: 065
  2. DAPSONE. [Suspect]
     Active Substance: DAPSONE
     Indication: COLITIS ULCERATIVE
  3. PREDNISONE. [Suspect]
     Active Substance: PREDNISONE
     Indication: PEMPHIGOID
  4. PREDNISONE. [Suspect]
     Active Substance: PREDNISONE
     Indication: COLITIS ULCERATIVE
     Route: 065

REACTIONS (1)
  - Leukopenia [Unknown]
